FAERS Safety Report 9407687 (Version 1)
Quarter: 2013Q3

REPORT INFORMATION
  Report Type: Spontaneous
  Country: US (occurrence: US)
  Receive Date: 20130718
  Receipt Date: 20130718
  Transmission Date: 20140515
  Serious: No
  Sender: FDA-Public Use
  Company Number: US-PFIZER INC-2013210825

PATIENT
  Age: 64 Year
  Sex: Male

DRUGS (1)
  1. XELJANZ [Suspect]
     Indication: CROHN^S DISEASE
     Dosage: 5 MG, 2X/DAY
     Route: 048
     Dates: start: 201305, end: 2013

REACTIONS (3)
  - Off label use [Unknown]
  - Hiccups [Unknown]
  - Vomiting [Unknown]
